FAERS Safety Report 21762637 (Version 4)
Quarter: 2023Q1

REPORT INFORMATION
  Report Type: Spontaneous
  Country: US (occurrence: US)
  Receive Date: 20221221
  Receipt Date: 20230315
  Transmission Date: 20230418
  Serious: No
  Sender: FDA-Public Use
  Company Number: US-PFIZER INC-PV202200127286

PATIENT
  Age: 58 Year
  Sex: Male
  Weight: 139.68 kg

DRUGS (2)
  1. BRAFTOVI [Suspect]
     Active Substance: ENCORAFENIB
     Dosage: UNK
  2. MEKTOVI [Suspect]
     Active Substance: BINIMETINIB
     Dosage: UNK

REACTIONS (7)
  - Neoplasm progression [Unknown]
  - Diarrhoea [Unknown]
  - Memory impairment [Unknown]
  - Confusional state [Unknown]
  - Rash [Unknown]
  - Fatigue [Unknown]
  - Nausea [Not Recovered/Not Resolved]
